FAERS Safety Report 10063090 (Version 1)
Quarter: 2014Q2

REPORT INFORMATION
  Report Type: Spontaneous
  Country: US (occurrence: US)
  Receive Date: 20140407
  Receipt Date: 20140407
  Transmission Date: 20141212
  Serious: Yes (Hospitalization, Other)
  Sender: FDA-Public Use
  Company Number: US-BAXTER-2014BAX016358

PATIENT
  Sex: Male

DRUGS (3)
  1. DIANEAL LOW CALCIUM [Suspect]
     Indication: PERITONEAL DIALYSIS
     Route: 033
  2. DIANEAL LOW CALCIUM [Suspect]
     Indication: PERITONEAL DIALYSIS
     Route: 033
  3. EXTRANEAL [Suspect]
     Indication: PERITONEAL DIALYSIS
     Route: 033

REACTIONS (7)
  - West Nile viral infection [Recovering/Resolving]
  - Pneumonia [Unknown]
  - Gastric disorder [Recovering/Resolving]
  - Pleural effusion [Recovering/Resolving]
  - Unevaluable event [Recovered/Resolved]
  - Blood potassium increased [Recovered/Resolved]
  - Blood phosphorus increased [Recovered/Resolved]
